FAERS Safety Report 6601890-4 (Version None)
Quarter: 2010Q1

REPORT INFORMATION
  Report Type: 
  Country: None (occurrence: None)
  Receive Date: 20100225
  Receipt Date: 20100212
  Transmission Date: 20100710
  Serious: No
  Sender: FDA-Public Use
  Company Number: JP-JNJFOC-20100206484

PATIENT
  Age: 71 Year
  Sex: Male

DRUGS (1)
  1. DUROTEP MT [Suspect]
     Indication: DRUG USE FOR UNKNOWN INDICATION
     Route: 062

REACTIONS (1)
  - DRUG PRESCRIBING ERROR [None]
